FAERS Safety Report 8462203-9 (Version None)
Quarter: 2012Q2

REPORT INFORMATION
  Report Type: 
  Country: None (occurrence: None)
  Receive Date: 20120625
  Receipt Date: 20120620
  Transmission Date: 20120825
  Serious: Yes (Death, Hospitalization)
  Sender: FDA-Public Use
  Company Number: PHHY2011DE93018

PATIENT
  Sex: Male
  Weight: 68 kg

DRUGS (6)
  1. ZOLEDRONOC ACID [Suspect]
     Dosage: 4 MG/5 ML, EVERY FOUR WEEKS
     Route: 042
     Dates: start: 20110623, end: 20120326
  2. ZOLEDRONOC ACID [Suspect]
     Indication: BONE DISORDER
     Dosage: 4 MG/5 ML, EVERY FOUR WEEKS
     Route: 042
     Dates: start: 20110105, end: 20110630
  3. NORVASC [Concomitant]
     Dosage: 5 MG
     Route: 065
     Dates: start: 20000101
  4. ATORVASTATIN CALCIUM [Concomitant]
     Dosage: 40 MG
     Route: 065
     Dates: start: 20000101
  5. PANTOPRAZOLE [Concomitant]
     Dosage: 40 MG
     Route: 065
     Dates: start: 20100101
  6. ATACAND HCT [Concomitant]
     Dosage: 1 TABLET
     Route: 065
     Dates: start: 20000101

REACTIONS (3)
  - DYSPNOEA [None]
  - CARDIAC FAILURE [None]
  - PULMONARY OEDEMA [None]
